FAERS Safety Report 9308143 (Version 2)
Quarter: 2013Q2

REPORT INFORMATION
  Report Type: Spontaneous
  Country: FR (occurrence: FR)
  Receive Date: 20130524
  Receipt Date: 20130612
  Transmission Date: 20140414
  Serious: Yes (Hospitalization)
  Sender: FDA-Public Use
  Company Number: FR-PFIZER INC-2013159431

PATIENT
  Age: 54 Year
  Sex: Female

DRUGS (1)
  1. LYRICA [Suspect]
     Indication: NEURALGIA
     Dosage: IN TOTAL 27 CAPSULES OF PREGABALIN 25 MG
     Dates: end: 201201

REACTIONS (3)
  - Congestive cardiomyopathy [Recovering/Resolving]
  - Chest discomfort [Unknown]
  - Dyspnoea [Unknown]
